FAERS Safety Report 4913685-8 (Version None)
Quarter: 2006Q1

REPORT INFORMATION
  Report Type: 
  Country: None (occurrence: None)
  Receive Date: 20060216
  Receipt Date: 20060203
  Transmission Date: 20060701
  Serious: Yes (Hospitalization)
  Sender: FDA-Public Use
  Company Number: DE-BRISTOL-MYERS SQUIBB COMPANY-13271739

PATIENT
  Age: 48 Year
  Sex: Male

DRUGS (2)
  1. REYATAZ [Suspect]
     Indication: HIV INFECTION
     Dates: start: 20040101
  2. COMBIVIR [Suspect]
     Indication: HIV INFECTION
     Dosage: 300 MG/150 MG
     Dates: start: 20040101

REACTIONS (1)
  - CONGESTIVE CARDIOMYOPATHY [None]
